FAERS Safety Report 13319835 (Version 2)
Quarter: 2017Q1

REPORT INFORMATION
  Report Type: Spontaneous
  Country: US (occurrence: US)
  Receive Date: 20170310
  Receipt Date: 20170317
  Transmission Date: 20170428
  Serious: No
  Sender: FDA-Public Use
  Company Number: US-BAYER-2017-046449

PATIENT
  Age: 51 Year
  Sex: Female
  Weight: 50 kg

DRUGS (2)
  1. KLONOPIN [Concomitant]
     Active Substance: CLONAZEPAM
     Dosage: UNK
  2. MIRALAX [Suspect]
     Active Substance: POLYETHYLENE GLYCOL 3350
     Indication: COELIAC DISEASE
     Dosage: 0.5 DF, BID (HALF A CAPFUL TWICE A DAY)
     Route: 048
     Dates: start: 2016, end: 20170309

REACTIONS (3)
  - Product use issue [Unknown]
  - Patient dissatisfaction with treatment [None]
  - Off label use [Unknown]

NARRATIVE: CASE EVENT DATE: 2016
